FAERS Safety Report 23611234 (Version 1)
Quarter: 2024Q1

REPORT INFORMATION
  Report Type: Spontaneous
  Country: CN (occurrence: None)
  Receive Date: 20240308
  Receipt Date: 20240308
  Transmission Date: 20240409
  Serious: Yes (Hospitalization, Other)
  Sender: FDA-Public Use
  Company Number: 2024A056254

PATIENT
  Age: 15718 Day
  Sex: Female
  Weight: 50 kg

DRUGS (12)
  1. BUDESONIDE [Suspect]
     Active Substance: BUDESONIDE
     Indication: Cough
     Route: 055
     Dates: start: 20240223, end: 20240226
  2. BUDESONIDE [Suspect]
     Active Substance: BUDESONIDE
     Indication: Productive cough
     Route: 055
     Dates: start: 20240223, end: 20240226
  3. BUDESONIDE [Suspect]
     Active Substance: BUDESONIDE
     Indication: Oropharyngeal pain
     Route: 055
     Dates: start: 20240223, end: 20240226
  4. TERBUTALINE SULFATE [Suspect]
     Active Substance: TERBUTALINE SULFATE
     Indication: Cough
     Dosage: 11 TIMES EVERY ONE DAY5.0MG UNKNOWN
     Route: 055
     Dates: start: 20240223, end: 20240226
  5. TERBUTALINE SULFATE [Suspect]
     Active Substance: TERBUTALINE SULFATE
     Indication: Productive cough
     Dosage: 11 TIMES EVERY ONE DAY5.0MG UNKNOWN
     Route: 055
     Dates: start: 20240223, end: 20240226
  6. TERBUTALINE SULFATE [Suspect]
     Active Substance: TERBUTALINE SULFATE
     Indication: Oropharyngeal pain
     Dosage: 11 TIMES EVERY ONE DAY5.0MG UNKNOWN
     Route: 055
     Dates: start: 20240223, end: 20240226
  7. GLYCYRRHIZA EXTRACT\HERBALS\SENNA LEAF\SULFUR [Suspect]
     Active Substance: GLYCYRRHIZA EXTRACT\HERBALS\SENNA LEAF\SULFUR
     Indication: Cough
     Route: 048
     Dates: start: 20240223, end: 20240225
  8. GLYCYRRHIZA EXTRACT\HERBALS\SENNA LEAF\SULFUR [Suspect]
     Active Substance: GLYCYRRHIZA EXTRACT\HERBALS\SENNA LEAF\SULFUR
     Indication: Productive cough
     Route: 048
     Dates: start: 20240223, end: 20240225
  9. GLYCYRRHIZA EXTRACT\HERBALS\SENNA LEAF\SULFUR [Suspect]
     Active Substance: GLYCYRRHIZA EXTRACT\HERBALS\SENNA LEAF\SULFUR
     Indication: Oropharyngeal pain
     Route: 048
     Dates: start: 20240223, end: 20240225
  10. AZITHROMYCIN [Suspect]
     Active Substance: AZITHROMYCIN
     Indication: Mycoplasma infection
     Route: 041
     Dates: start: 20240223, end: 20240226
  11. SODIUM CHLORIDE [Concomitant]
     Active Substance: SODIUM CHLORIDE
     Route: 055
     Dates: start: 20240223, end: 20240226
  12. DEXTROSE [Concomitant]
     Active Substance: DEXTROSE\DEXTROSE MONOHYDRATE
     Route: 041
     Dates: start: 20240223, end: 20240226

REACTIONS (4)
  - Chest discomfort [Recovering/Resolving]
  - Dyspnoea [Recovering/Resolving]
  - Hypoaesthesia [Recovering/Resolving]
  - Tremor [Recovering/Resolving]

NARRATIVE: CASE EVENT DATE: 20240226
